FAERS Safety Report 9397741 (Version 1)
Quarter: 2013Q3

REPORT INFORMATION
  Report Type: Report from Study
  Country: FR (occurrence: FR)
  Receive Date: 20130712
  Receipt Date: 20130712
  Transmission Date: 20140515
  Serious: Yes (Hospitalization, Disabling)
  Sender: FDA-Public Use
  Company Number: FR-ROCHE-1244048

PATIENT
  Age: 81 Year
  Sex: Male
  Weight: 57 kg

DRUGS (14)
  1. RITUXIMAB [Suspect]
     Indication: NON-HODGKIN^S LYMPHOMA
     Route: 042
     Dates: start: 20120403, end: 20120627
  2. CYCLOPHOSPHAMIDE [Suspect]
     Indication: NON-HODGKIN^S LYMPHOMA
     Route: 042
     Dates: start: 20120403, end: 20120627
  3. VINCRISTINE [Suspect]
     Indication: NON-HODGKIN^S LYMPHOMA
     Route: 042
     Dates: start: 20120403, end: 20120627
  4. TEMERIT [Concomitant]
     Route: 065
  5. BACTRIM FORTE [Concomitant]
     Route: 065
  6. EUPANTOL [Concomitant]
     Route: 065
  7. LASILIX [Concomitant]
     Route: 065
  8. LIPANTHYL [Concomitant]
     Route: 065
  9. ZELITREX [Concomitant]
     Route: 065
  10. ZYLORIC [Concomitant]
     Route: 065
  11. NEORECORMON [Concomitant]
     Dosage: 30000 IU/0.6ML
     Route: 058
  12. NOVOMIX [Concomitant]
     Dosage: 30/FLEXPEN
     Route: 065
  13. NOVORAPID [Concomitant]
     Dosage: 100
     Route: 065
  14. RAMIPRIL [Concomitant]
     Route: 065

REACTIONS (5)
  - Febrile bone marrow aplasia [Recovered/Resolved]
  - Cholestasis [Not Recovered/Not Resolved]
  - Fall [Unknown]
  - Pulmonary embolism [Recovered/Resolved with Sequelae]
  - Head injury [Recovered/Resolved with Sequelae]
